FAERS Safety Report 4804725-5 (Version None)
Quarter: 2005Q4

REPORT INFORMATION
  Report Type: 
  Country: None (occurrence: None)
  Receive Date: 20051020
  Receipt Date: 20051010
  Transmission Date: 20060501
  Serious: Yes (Other)
  Sender: FDA-Public Use
  Company Number: GB-JNJFOC-20051002358

PATIENT
  Age: 36 Year
  Sex: Female

DRUGS (3)
  1. RISPERIDONE [Suspect]
     Indication: ANXIETY
     Route: 048
  2. VENLAFAXINE HCL [Suspect]
     Indication: DEPRESSION
     Route: 048
  3. AMITRIPTYLINE HCL [Suspect]
     Indication: DEPRESSION
     Dosage: 75 MG NOCTE
     Route: 065

REACTIONS (1)
  - ABORTION SPONTANEOUS [None]
